FAERS Safety Report 13110857 (Version 1)
Quarter: 2017Q1

REPORT INFORMATION
  Report Type: Spontaneous
  Country: US (occurrence: US)
  Receive Date: 20170112
  Receipt Date: 20170112
  Transmission Date: 20170428
  Serious: No
  Sender: FDA-Public Use
  Company Number: ALCN2017US000596

PATIENT
  Age: 83 Year
  Sex: Female

DRUGS (1)
  1. SYSTANE ULTRA [Suspect]
     Active Substance: POLYETHYLENE GLYCOL 400\PROPYLENE GLYCOL
     Indication: DRY EYE
     Dosage: 2 GTT, QD (1 TO 2 GTT)
     Route: 047
     Dates: start: 20161221

REACTIONS (3)
  - Swelling face [Unknown]
  - Peripheral swelling [Unknown]
  - Nausea [Unknown]

NARRATIVE: CASE EVENT DATE: 20170111
